FAERS Safety Report 7016397-2 (Version None)
Quarter: 2010Q3

REPORT INFORMATION
  Report Type: 
  Country: None (occurrence: None)
  Receive Date: 20100927
  Receipt Date: 20100917
  Transmission Date: 20110219
  Serious: Yes (Hospitalization, Other)
  Sender: FDA-Public Use
  Company Number: PHHY2010CA61979

PATIENT
  Sex: Female

DRUGS (3)
  1. SANDOSTATIN [Suspect]
     Dosage: 100 UG, BID
     Route: 058
     Dates: start: 20100101
  2. SANDOSTATIN [Suspect]
     Dosage: 100 UG, BID
     Route: 058
     Dates: start: 20100201
  3. SANDOSTATIN LAR [Suspect]
     Indication: CROHN'S DISEASE
     Dosage: 30 MG, QMO
     Route: 030
     Dates: start: 20100729, end: 20100831

REACTIONS (6)
  - BODY TEMPERATURE DECREASED [None]
  - DEHYDRATION [None]
  - DRUG EFFECT DECREASED [None]
  - GASTROINTESTINAL SURGERY [None]
  - HYPOTENSION [None]
  - INTESTINAL OBSTRUCTION [None]
